FAERS Safety Report 18427684 (Version 1)
Quarter: 2020Q4

REPORT INFORMATION
  Report Type: Spontaneous
  Country: US (occurrence: US)
  Receive Date: 20201026
  Receipt Date: 20201026
  Transmission Date: 20210114
  Serious: No
  Sender: FDA-Public Use
  Company Number: US-BIOHAVEN PHARMACEUTICALS-2020BHV00297

PATIENT
  Sex: Female

DRUGS (1)
  1. NURTEC ODT [Suspect]
     Active Substance: RIMEGEPANT SULFATE
     Dosage: UNK
     Dates: start: 202005

REACTIONS (8)
  - Disorientation [Recovering/Resolving]
  - Therapeutic product effect decreased [Not Recovered/Not Resolved]
  - Nausea [Recovering/Resolving]
  - Product taste abnormal [Unknown]
  - Pain [Recovering/Resolving]
  - Fatigue [Unknown]
  - Dizziness [Recovering/Resolving]
  - Discomfort [Unknown]

NARRATIVE: CASE EVENT DATE: 2020
